FAERS Safety Report 24706833 (Version 2)
Quarter: 2024Q4

REPORT INFORMATION
  Report Type: Spontaneous
  Country: JP (occurrence: JP)
  Receive Date: 20241206
  Receipt Date: 20241211
  Transmission Date: 20250115
  Serious: Yes (Other)
  Sender: BIOVITRUM
  Company Number: JP-BIOVITRUM-2024-JP-015511

PATIENT
  Age: 30 Year
  Sex: Male

DRUGS (2)
  1. DOPTELET [Suspect]
     Active Substance: AVATROMBOPAG MALEATE
     Indication: Liver disorder
  2. DOPTELET [Suspect]
     Active Substance: AVATROMBOPAG MALEATE
     Indication: Varices oesophageal
     Dosage: ONCE PER DAY FOR 5 DAYS
     Route: 048

REACTIONS (2)
  - Haematemesis [Recovering/Resolving]
  - Oesophageal varices haemorrhage [Recovered/Resolved]
